FAERS Safety Report 19211552 (Version 10)
Quarter: 2024Q1

REPORT INFORMATION
  Report Type: Report from Study
  Country: CO (occurrence: CO)
  Receive Date: 20210504
  Receipt Date: 20240110
  Transmission Date: 20240409
  Serious: Yes (Other)
  Sender: FDA-Public Use
  Company Number: CO-NOVARTISPH-NVSC2021CO044672

PATIENT
  Sex: Female
  Weight: 81.4 kg

DRUGS (10)
  1. KISQALI [Suspect]
     Active Substance: RIBOCICLIB
     Indication: Hormone receptor positive HER2 negative breast cancer
     Dosage: 600 MG, QD
     Route: 048
     Dates: start: 20210113
  2. KISQALI [Suspect]
     Active Substance: RIBOCICLIB
     Dosage: 600 MG, QD
     Route: 048
     Dates: start: 20210208
  3. KISQALI [Suspect]
     Active Substance: RIBOCICLIB
     Dosage: 600 MG, QD
     Route: 048
  4. KISQALI [Suspect]
     Active Substance: RIBOCICLIB
     Dosage: UNK
     Route: 048
  5. FEMARA [Suspect]
     Active Substance: LETROZOLE
     Indication: Hormone receptor positive HER2 negative breast cancer
     Dosage: 2.5 MG, QD
     Route: 048
     Dates: start: 20210113
  6. FEMARA [Suspect]
     Active Substance: LETROZOLE
     Dosage: 2.5 MG, QD
     Route: 048
  7. FEMARA [Suspect]
     Active Substance: LETROZOLE
     Dosage: UNK
     Route: 048
  8. ZOLEDRONIC ACID [Suspect]
     Active Substance: ZOLEDRONIC ACID
     Indication: Product used for unknown indication
     Dosage: UNK
     Route: 065
  9. ENDIAL [Concomitant]
     Indication: Irritable bowel syndrome
     Dosage: UNK
     Route: 065
  10. DESLORATADINE [Concomitant]
     Active Substance: DESLORATADINE
     Indication: Product used for unknown indication
     Dosage: UNK
     Route: 065

REACTIONS (28)
  - Colitis [Unknown]
  - Hormone receptor positive HER2 negative breast cancer [Unknown]
  - Malignant neoplasm progression [Unknown]
  - Myalgia [Unknown]
  - Drug intolerance [Unknown]
  - Head discomfort [Unknown]
  - Headache [Unknown]
  - Nausea [Unknown]
  - Feeling abnormal [Unknown]
  - Pain [Unknown]
  - COVID-19 [Recovered/Resolved]
  - Bone pain [Unknown]
  - Illness [Unknown]
  - Malaise [Unknown]
  - Influenza [Unknown]
  - Pain in extremity [Unknown]
  - Spinal pain [Unknown]
  - Constipation [Unknown]
  - Fatigue [Unknown]
  - Back pain [Unknown]
  - Throat irritation [Unknown]
  - Pyrexia [Unknown]
  - Product dose omission in error [Unknown]
  - Cough [Unknown]
  - Confusional state [Unknown]
  - Depressed mood [Unknown]
  - Diarrhoea [Unknown]
  - Abdominal pain [Unknown]
